FAERS Safety Report 20563460 (Version 12)
Quarter: 2024Q1

REPORT INFORMATION
  Report Type: Spontaneous
  Country: US (occurrence: US)
  Receive Date: 20220308
  Receipt Date: 20240325
  Transmission Date: 20240409
  Serious: Yes (Other)
  Sender: FDA-Public Use
  Company Number: US-PFIZER INC-202200343835

PATIENT
  Age: 91 Year
  Sex: Female
  Weight: 63.492 kg

DRUGS (4)
  1. ESTRING [Suspect]
     Active Substance: ESTRADIOL
     Indication: Hormone therapy
     Dosage: 2 MG USUALLY TAKE EVERY 2 TO 3 MONTHS (7.5 UG 24 HR)
     Dates: start: 1992
  2. PREDNISONE [Concomitant]
     Active Substance: PREDNISONE
     Indication: Rheumatoid arthritis
     Dosage: 10MG, 5 MILLIGRAMS, ONCE A DAY
  3. ASPIRIN [Concomitant]
     Active Substance: ASPIRIN
     Dosage: LOW DOSE ASPIRIN
  4. VITAMINS NOS [Concomitant]
     Active Substance: VITAMINS
     Dosage: UNK

REACTIONS (12)
  - Fungal infection [Not Recovered/Not Resolved]
  - Urinary tract infection [Unknown]
  - Illness [Unknown]
  - COVID-19 [Unknown]
  - Pain [Unknown]
  - Motor dysfunction [Unknown]
  - Weight decreased [Unknown]
  - Body height decreased [Unknown]
  - Asthenia [Unknown]
  - Carpal tunnel syndrome [Unknown]
  - Therapeutic response unexpected [Unknown]
  - Energy increased [Unknown]
